FAERS Safety Report 6693213-X (Version None)
Quarter: 2010Q2

REPORT INFORMATION
  Report Type: 
  Country: None (occurrence: None)
  Receive Date: 20100421
  Receipt Date: 20100421
  Transmission Date: 20101027
  Serious: Yes (Hospitalization, Other)
  Sender: FDA-Public Use
  Company Number: None

PATIENT
  Age: 43 Year
  Sex: Female
  Weight: 40.8237 kg

DRUGS (2)
  1. COMBIVENT [Suspect]
     Dosage: INHAL
     Route: 055
     Dates: start: 20081217, end: 20090127
  2. SPIRIVA [Suspect]
     Dosage: INHAL
     Route: 055
     Dates: start: 20090115, end: 20090127

REACTIONS (2)
  - COLLAPSE OF LUNG [None]
  - PULMONARY AIR LEAKAGE [None]
